FAERS Safety Report 5959363-8 (Version None)
Quarter: 2008Q4

REPORT INFORMATION
  Report Type: 
  Country: None (occurrence: None)
  Receive Date: 20081117
  Receipt Date: 20081007
  Transmission Date: 20090506
  Serious: Yes (Other)
  Sender: FDA-Public Use
  Company Number: CIP08002177

PATIENT
  Age: 23 Year
  Sex: Male

DRUGS (3)
  1. ASACOL [Suspect]
     Indication: COLITIS ULCERATIVE
     Dosage: 2.4 GRAMS DAILY, ORAL
     Route: 048
     Dates: start: 20060301, end: 20060401
  2. ASACOL [Suspect]
     Indication: SIGMOIDITIS
     Dosage: 2.4 GRAMS DAILY, ORAL
     Route: 048
     Dates: start: 20060301, end: 20060401
  3. ASACOL [Concomitant]

REACTIONS (4)
  - ARTHRALGIA [None]
  - DRUG HYPERSENSITIVITY [None]
  - PLEURISY [None]
  - SIGMOIDITIS [None]
